FAERS Safety Report 24996450 (Version 1)
Quarter: 2025Q1

REPORT INFORMATION
  Report Type: Spontaneous
  Country: SA (occurrence: SA)
  Receive Date: 20250221
  Receipt Date: 20250221
  Transmission Date: 20250408
  Serious: Yes (Other)
  Sender: PFIZER
  Company Number: SA-PFIZER INC-202500038689

PATIENT
  Age: 12 Year
  Sex: Female

DRUGS (2)
  1. SOMATROPIN [Suspect]
     Active Substance: SOMATROPIN
     Indication: Blood growth hormone
  2. SOMATROPIN [Suspect]
     Active Substance: SOMATROPIN
     Dosage: 50 UG/KG, 1X/DAY

REACTIONS (1)
  - Scoliosis [Recovering/Resolving]
